FAERS Safety Report 9289903 (Version 1)
Quarter: 2013Q2

REPORT INFORMATION
  Report Type: Spontaneous
  Country: ES (occurrence: ES)
  Receive Date: 20130515
  Receipt Date: 20130515
  Transmission Date: 20140414
  Serious: Yes (Death, Hospitalization)
  Sender: FDA-Public Use
  Company Number: ES-RANBAXY-2013R1-69046

PATIENT
  Age: 36 Year
  Sex: Female

DRUGS (8)
  1. FLUCONAZOLE [Suspect]
     Indication: ORAL CANDIDIASIS
     Dosage: 100 MG/DAY
     Route: 065
     Dates: start: 200209
  2. ITRACONAZOLE [Suspect]
     Indication: ORAL CANDIDIASIS
     Dosage: 100 MG/DAY
     Route: 048
     Dates: start: 20030306
  3. VORICONAZOLE [Suspect]
     Indication: ASPERGILLUS INFECTION
     Dosage: 200 MG, Q12H
     Route: 048
  4. VORICONAZOLE [Suspect]
     Indication: ASPERGILLUS INFECTION
     Dosage: 200 MG, BID
     Route: 048
     Dates: start: 200409
  5. CASPOFUNGIN/ VORICONAZOLE [Concomitant]
     Indication: ASPERGILLUS INFECTION
     Dosage: 6 MG/KG, BID
     Route: 042
  6. AMPHOTERICIN B [Concomitant]
     Indication: ASPERGILLUS INFECTION
  7. CASPOFUNGIN/ VORICONAZOLE [Concomitant]
     Indication: ASPERGILLUS INFECTION
     Dosage: 4 MG/KG, BID
     Route: 065
  8. CASPOFUNGIN/ VORICONAZOLE [Concomitant]
     Indication: ASPERGILLUS INFECTION
     Dosage: UNK
     Route: 065
     Dates: start: 200405

REACTIONS (2)
  - Bronchopulmonary aspergillosis [Not Recovered/Not Resolved]
  - Death [Fatal]
